FAERS Safety Report 9163668 (Version 1)
Quarter: 2013Q1

REPORT INFORMATION
  Report Type: Spontaneous
  Country: US (occurrence: US)
  Receive Date: 20130314
  Receipt Date: 20130314
  Transmission Date: 20140127
  Serious: Yes (Other)
  Sender: FDA-Public Use
  Company Number: US-TEVA-390665USA

PATIENT
  Sex: Female
  Weight: 65.83 kg

DRUGS (4)
  1. CLARAVIS [Suspect]
     Indication: ACNE
     Dates: start: 20130130, end: 20130216
  2. MYORISAN [Suspect]
     Indication: ACNE
     Dosage: 40 MILLIGRAM DAILY;
     Route: 048
     Dates: start: 20130102
  3. PREDNISONE [Suspect]
     Dosage: 10 MILLIGRAM DAILY;
     Dates: start: 201210, end: 201211
  4. SERTRALINE [Concomitant]
     Dosage: 12.5 MILLIGRAM DAILY;
     Dates: start: 201210

REACTIONS (8)
  - Withdrawal syndrome [Recovering/Resolving]
  - Headache [Recovering/Resolving]
  - Pain [Not Recovered/Not Resolved]
  - Influenza like illness [Unknown]
  - Fatigue [Not Recovered/Not Resolved]
  - Somnolence [Unknown]
  - Laziness [Unknown]
  - Adverse event [Unknown]
